FAERS Safety Report 6699954-2 (Version None)
Quarter: 2010Q2

REPORT INFORMATION
  Report Type: 
  Country: None (occurrence: None)
  Receive Date: 20100428
  Receipt Date: 20100416
  Transmission Date: 20101027
  Serious: Yes (Hospitalization)
  Sender: FDA-Public Use
  Company Number: PHHY2010FR18805

PATIENT
  Sex: Male
  Weight: 94 kg

DRUGS (3)
  1. EUCREAS [Suspect]
     Indication: TYPE 2 DIABETES MELLITUS
     Dosage: 2 DF, UNK
     Dates: start: 20100125, end: 20100322
  2. CRESTOR [Suspect]
     Indication: HYPERCHOLESTEROLAEMIA
     Dosage: 1 DF, UNK
     Route: 048
     Dates: start: 20100125, end: 20100322
  3. TAREG [Concomitant]
     Indication: HYPERTENSION
     Dosage: 1 DF, UNK
     Dates: start: 20080101

REACTIONS (4)
  - ABDOMINAL PAIN [None]
  - FLANK PAIN [None]
  - HEPATITIS [None]
  - JAUNDICE [None]
